FAERS Safety Report 14933523 (Version 1)
Quarter: 2018Q2

REPORT INFORMATION
  Report Type: Spontaneous
  Country: US (occurrence: US)
  Receive Date: 20180524
  Receipt Date: 20180524
  Transmission Date: 20180711
  Serious: No
  Sender: FDA-Public Use
  Company Number: US-BRISTOL-MYERS SQUIBB COMPANY-BMS-2018-045993

PATIENT
  Age: 52 Year
  Sex: Female

DRUGS (3)
  1. ELIQUIS [Suspect]
     Active Substance: APIXABAN
     Indication: THROMBOSIS
     Dosage: 10 MG, BID
     Route: 048
     Dates: start: 20180413
  2. ELIQUIS [Suspect]
     Active Substance: APIXABAN
     Indication: PRODUCT USED FOR UNKNOWN INDICATION
     Dosage: 5 MG, BID
     Route: 048
  3. SYNTHROID [Concomitant]
     Active Substance: LEVOTHYROXINE SODIUM
     Indication: PRODUCT USED FOR UNKNOWN INDICATION
     Route: 065

REACTIONS (11)
  - Abdominal distension [Unknown]
  - Hypopnoea [Unknown]
  - Chest discomfort [Unknown]
  - Dizziness [Unknown]
  - Migraine [Unknown]
  - Blood pressure decreased [Unknown]
  - Feeling abnormal [Unknown]
  - Gingival bleeding [Unknown]
  - Asthenia [Unknown]
  - Hypersomnia [Unknown]
  - Visual impairment [Unknown]

NARRATIVE: CASE EVENT DATE: 20180414
